FAERS Safety Report 20187053 (Version 1)
Quarter: 2021Q4

REPORT INFORMATION
  Report Type: Spontaneous
  Country: US (occurrence: US)
  Receive Date: 20211215
  Receipt Date: 20211215
  Transmission Date: 20220303
  Serious: Yes (Hospitalization, Other)
  Sender: FDA-Public Use
  Company Number: US-AMGEN-USASP2021196169

PATIENT

DRUGS (16)
  1. PROLIA [Suspect]
     Active Substance: DENOSUMAB
     Indication: Osteoporosis
     Dosage: UNK
     Route: 065
  2. CANAGLIFLOZIN [Concomitant]
     Active Substance: CANAGLIFLOZIN
  3. DAPAGLIFLOZIN [Concomitant]
     Active Substance: DAPAGLIFLOZIN
  4. EMPAGLIFLOZIN [Concomitant]
     Active Substance: EMPAGLIFLOZIN
  5. ALOGLIPTIN [Concomitant]
     Active Substance: ALOGLIPTIN
  6. LINAGLIPTIN [Concomitant]
     Active Substance: LINAGLIPTIN
  7. SAXAGLIPTIN [Concomitant]
     Active Substance: SAXAGLIPTIN
  8. SITAGLIPTIN [Concomitant]
     Active Substance: SITAGLIPTIN
  9. ALBIGLUTIDE [Concomitant]
     Active Substance: ALBIGLUTIDE
  10. DULAGLUTIDE [Concomitant]
     Active Substance: DULAGLUTIDE
  11. EXENATIDE [Concomitant]
     Active Substance: EXENATIDE
  12. LIRAGLUTIDE [Concomitant]
     Active Substance: LIRAGLUTIDE
  13. LIXISENATIDE [Concomitant]
     Active Substance: LIXISENATIDE
  14. SEMAGLUTIDE [Concomitant]
     Active Substance: SEMAGLUTIDE
  15. INSULIN NOS [Concomitant]
     Active Substance: INSULIN NOS
  16. METFORMIN [Concomitant]
     Active Substance: METFORMIN HYDROCHLORIDE

REACTIONS (6)
  - Cardiac failure [Unknown]
  - Syncope [Unknown]
  - Diabetic ketoacidosis [Unknown]
  - Fracture [Unknown]
  - Hypoglycaemia [Unknown]
  - Fall [Unknown]
